FAERS Safety Report 11739721 (Version 1)
Quarter: 2015Q4

REPORT INFORMATION
  Report Type: Spontaneous
  Country: US (occurrence: US)
  Receive Date: 20151113
  Receipt Date: 20151113
  Transmission Date: 20160304
  Serious: Yes (Death)
  Sender: FDA-Public Use
  Company Number: US-SUNOVION-2015SUN000854

PATIENT
  Sex: Male

DRUGS (5)
  1. LATUDA [Suspect]
     Active Substance: LURASIDONE HYDROCHLORIDE
     Indication: BIPOLAR DISORDER
     Dosage: 40 MG, UNK
     Route: 048
     Dates: start: 201502
  2. LAMICTAL [Suspect]
     Active Substance: LAMOTRIGINE
     Dosage: UNK
  3. LATUDA [Suspect]
     Active Substance: LURASIDONE HYDROCHLORIDE
     Dosage: 80 MG, UNK
     Route: 048
     Dates: start: 201502
  4. COGENTIN [Suspect]
     Active Substance: BENZTROPINE MESYLATE
     Dosage: UNK
  5. ZOLOFT [Suspect]
     Active Substance: SERTRALINE HYDROCHLORIDE
     Dosage: UNK

REACTIONS (3)
  - Completed suicide [Fatal]
  - Restlessness [Unknown]
  - Depression [Unknown]

NARRATIVE: CASE EVENT DATE: 201503
